FAERS Safety Report 8559364-X (Version None)
Quarter: 2012Q3

REPORT INFORMATION
  Report Type: 
  Country: None (occurrence: None)
  Receive Date: 20120802
  Receipt Date: 20120801
  Transmission Date: 20120928
  Serious: Yes (Other)
  Sender: FDA-Public Use
  Company Number: PHHY2012IT060685

PATIENT
  Sex: Female

DRUGS (9)
  1. XELODA [Concomitant]
     Indication: BREAST CANCER
     Dosage: 1000 MG, UNK
     Route: 048
     Dates: start: 20110713, end: 20111103
  2. TAXOTERE [Concomitant]
     Indication: BREAST CANCER
     Dosage: 136 MG
     Route: 042
     Dates: start: 20090108, end: 20090423
  3. EPIRUBICIN [Concomitant]
     Indication: BREAST CANCER
     Dosage: 136 MG
     Route: 042
     Dates: start: 20090108, end: 20120423
  4. ZOMETA [Suspect]
     Indication: PROPHYLAXIS
     Dosage: 4 MG, QMO
     Route: 042
     Dates: start: 20081201, end: 20100415
  5. ZOMETA [Suspect]
     Dosage: 4 MG, QMO
     Route: 042
     Dates: start: 20110120, end: 20120410
  6. VINORELBINE [Concomitant]
     Indication: BREAST CANCER
     Dosage: 35 MG, UNK
     Dates: start: 20110713, end: 20111103
  7. PREDNISONE TAB [Concomitant]
     Dosage: 12.5 MG, UNK
     Route: 048
  8. ENALAPRIL MALEATE [Concomitant]
     Dosage: 10 MG
     Route: 048
  9. TORSEMIDE [Concomitant]
     Dosage: 5 MG,
     Route: 048

REACTIONS (1)
  - OSTEONECROSIS OF JAW [None]
